FAERS Safety Report 18506759 (Version 2)
Quarter: 2020Q4

REPORT INFORMATION
  Report Type: Spontaneous
  Country: VN (occurrence: VN)
  Receive Date: 20201116
  Receipt Date: 20201125
  Transmission Date: 20210114
  Serious: Yes (Death, Other)
  Sender: FDA-Public Use
  Company Number: VN-FERRINGPH-2020FE08020

PATIENT
  Age: 24 Year
  Sex: Female

DRUGS (1)
  1. PROPESS [Suspect]
     Active Substance: DINOPROSTONE
     Indication: INDUCTION OF CERVIX RIPENING
     Dosage: 10 MG, ONCE/SINGLE
     Route: 067
     Dates: start: 20201102, end: 20201102

REACTIONS (1)
  - Postpartum haemorrhage [Fatal]

NARRATIVE: CASE EVENT DATE: 20201102
